FAERS Safety Report 11662906 (Version 2)
Quarter: 2015Q4

REPORT INFORMATION
  Report Type: Spontaneous
  Country: US (occurrence: US)
  Receive Date: 20151027
  Receipt Date: 20151027
  Transmission Date: 20160304
  Serious: No
  Sender: FDA-Public Use
  Company Number: US-MEDA-2014040065

PATIENT
  Sex: Male

DRUGS (5)
  1. NEO-SYNEPHRINE [Concomitant]
     Active Substance: PHENYLEPHRINE HYDROCHLORIDE
  2. XOPENEX [Concomitant]
     Active Substance: LEVALBUTEROL HYDROCHLORIDE
     Indication: ASTHMA
  3. QNASL [Concomitant]
     Active Substance: BECLOMETHASONE DIPROPIONATE
  4. DYMISTA [Suspect]
     Active Substance: AZELASTINE HYDROCHLORIDE\FLUTICASONE PROPIONATE
     Indication: RHINITIS
     Dates: end: 20140420
  5. DYMISTA [Suspect]
     Active Substance: AZELASTINE HYDROCHLORIDE\FLUTICASONE PROPIONATE
     Indication: RHINITIS
     Dates: start: 2014, end: 2014

REACTIONS (10)
  - Choking [Recovered/Resolved]
  - Rhinitis [Recovered/Resolved]
  - Upper-airway cough syndrome [Recovered/Resolved]
  - Sinus congestion [Recovered/Resolved]
  - Chest discomfort [Recovered/Resolved]
  - Asthma [Recovered/Resolved]
  - Eye pruritus [Recovered/Resolved]
  - Throat irritation [Recovered/Resolved]
  - Cough [Recovered/Resolved]
  - Eye swelling [Recovered/Resolved]

NARRATIVE: CASE EVENT DATE: 201404
